FAERS Safety Report 4501301-9 (Version None)
Quarter: 2004Q3

REPORT INFORMATION
  Report Type: 
  Country: None (occurrence: None)
  Receive Date: 20040928
  Receipt Date: 20040824
  Transmission Date: 20050211
  Serious: No
  Sender: FDA-Public Use
  Company Number: 04P-163-0270763-00

PATIENT
  Age: 59 Year
  Sex: Female
  Weight: 45.3597 kg

DRUGS (10)
  1. HUMIRA [Suspect]
     Indication: RHEUMATOID ARTHRITIS
     Dosage: 40 MG 1 IN 2 WK SUBCUTANEOUS
     Route: 058
     Dates: start: 20031001
  2. METHOTREXATE [Concomitant]
  3. PREDNISONE [Concomitant]
  4. CONJUGATED ESTROGEN [Concomitant]
  5. FENTANYL [Concomitant]
  6. FENTANYL [Concomitant]
  7. CARISOPRODOL [Concomitant]
  8. AMLODIPINE BESYLATE [Concomitant]
  9. FOLIC ACID [Concomitant]
  10. BENAZEPRIL HCL [Concomitant]

REACTIONS (2)
  - HEPATIC ENZYME INCREASED [None]
  - WEIGHT DECREASED [None]
